FAERS Safety Report 11826547 (Version 1)
Quarter: 2015Q4

REPORT INFORMATION
  Report Type: Spontaneous
  Country: IT (occurrence: IT)
  Receive Date: 20151211
  Receipt Date: 20151211
  Transmission Date: 20160305
  Serious: Yes (Hospitalization)
  Sender: FDA-Public Use
  Company Number: IT-SA-2015SA203617

PATIENT
  Age: 71 Year
  Sex: Female
  Weight: 73 kg

DRUGS (12)
  1. LANTUS SOLOSTAR [Suspect]
     Active Substance: INSULIN GLARGINE
     Indication: TYPE 2 DIABETES MELLITUS
     Route: 058
     Dates: start: 20140101, end: 20140720
  2. LASIX [Concomitant]
     Active Substance: FUROSEMIDE
  3. METFORMIN [Suspect]
     Active Substance: METFORMIN HYDROCHLORIDE
     Indication: TYPE 2 DIABETES MELLITUS
     Route: 048
     Dates: start: 20140101, end: 20140720
  4. FERRO-GRAD [Concomitant]
     Active Substance: FERROUS SULFATE\FERROUS SULFATE, DRIED
     Dosage: STRENGTH: 105MG
  5. SOLOSA [Suspect]
     Active Substance: GLIMEPIRIDE
     Indication: TYPE 2 DIABETES MELLITUS
     Route: 048
     Dates: start: 20140101, end: 20140720
  6. TOTALIP [Concomitant]
     Active Substance: ATORVASTATIN
  7. PANTECTA [Concomitant]
     Active Substance: PANTOPRAZOLE SODIUM
  8. FOLINA [Concomitant]
     Active Substance: FOLIC ACID
     Dosage: DOSE: 20M?STRENGTH: 5MG
  9. ZYLORIC [Concomitant]
     Active Substance: ALLOPURINOL
  10. CARDIOASPIRIN [Concomitant]
     Active Substance: ASPIRIN
  11. OLPRESS [Concomitant]
     Active Substance: OLMESARTAN MEDOXOMIL
  12. SOLOSTAR [Concomitant]
     Active Substance: DEVICE
     Indication: TYPE 2 DIABETES MELLITUS
     Dates: start: 20140101, end: 20140720

REACTIONS (3)
  - Hypoglycaemia [Recovered/Resolved]
  - Vitamin B12 deficiency [Recovered/Resolved]
  - Hyperkalaemia [Recovered/Resolved]

NARRATIVE: CASE EVENT DATE: 20140720
